FAERS Safety Report 19953112 (Version 1)
Quarter: 2021Q4

REPORT INFORMATION
  Report Type: Spontaneous
  Country: US (occurrence: US)
  Receive Date: 20211013
  Receipt Date: 20211013
  Transmission Date: 20220303
  Serious: No
  Sender: FDA-Public Use
  Company Number: US-REDHILL BIOPHARMA-2021RDH00110

PATIENT
  Sex: Female

DRUGS (1)
  1. MOVANTIK [Suspect]
     Active Substance: NALOXEGOL OXALATE
     Indication: Constipation
     Dosage: 12.5 MG, 1X/DAY, FIRST THING IN THE MORNING
     Dates: end: 20210708

REACTIONS (2)
  - Abdominal pain upper [Recovered/Resolved]
  - Malaise [Recovered/Resolved]
